FAERS Safety Report 11160058 (Version 5)
Quarter: 2015Q3

REPORT INFORMATION
  Report Type: Report from Study
  Country: BE (occurrence: BE)
  Receive Date: 20150603
  Receipt Date: 20150729
  Transmission Date: 20151125
  Serious: Yes (Hospitalization)
  Sender: FDA-Public Use
  Company Number: BE-ABBVIE-15P-013-1377705-00

PATIENT
  Sex: Male

DRUGS (5)
  1. DUODOPA [Suspect]
     Active Substance: CARBIDOPA\LEVODOPA
     Indication: PARKINSON^S DISEASE
     Dosage: AM=4ML-CD=1.6ML/HR DURING 16HRS- ED=1ML
     Route: 050
     Dates: start: 20141201, end: 20141203
  2. DUODOPA [Suspect]
     Active Substance: CARBIDOPA\LEVODOPA
     Dosage: AM=4ML;CD=1.7ML/HR DURING 16HRS;ED=1ML
     Route: 050
     Dates: start: 20141203, end: 20150601
  3. DUODOPA [Suspect]
     Active Substance: CARBIDOPA\LEVODOPA
     Dosage: AM:4ML; CD: { 1.5ML/H FOR 16HRS; ED: 1ML MAX EVERY 3HRS
     Route: 050
     Dates: end: 20150701
  4. DUODOPA [Suspect]
     Active Substance: CARBIDOPA\LEVODOPA
     Dosage: AM = 4 ML, CD = 1.7 ML/H DURING 16H, ED = 1 ML MAX EVERY 3 HOURS
     Route: 050
     Dates: start: 20150601, end: 20150605
  5. DUODOPA [Suspect]
     Active Substance: CARBIDOPA\LEVODOPA
     Dosage: AM = 4 ML, CD = 1.5 ML/H DURING 16H, ED = 1 ML MAX EVERY 3 HOURS
     Route: 050
     Dates: start: 20150605

REACTIONS (7)
  - Cognitive disorder [Unknown]
  - Emotional disorder [Unknown]
  - Hallucination [Unknown]
  - Dyskinesia [Unknown]
  - Confusional state [Not Recovered/Not Resolved]
  - Impaired self-care [Unknown]
  - Urinary tract infection [Unknown]
